FAERS Safety Report 5477043-2 (Version None)
Quarter: 2007Q4

REPORT INFORMATION
  Report Type: 
  Country: None (occurrence: None)
  Receive Date: 20071002
  Receipt Date: 20071002
  Transmission Date: 20080405
  Serious: Yes (Other)
  Sender: FDA-Public Use
  Company Number: None

PATIENT
  Sex: Male

DRUGS (2)
  1. CLOZAPINE [Suspect]
     Indication: BIPOLAR DISORDER
     Dosage: 25 MG TWICE DAILY PO
     Route: 048
     Dates: start: 20070817, end: 20070906
  2. CLOZAPINE [Suspect]
     Dosage: 50 MG AT BEDTIME PO
     Route: 048
     Dates: start: 20070817, end: 20070906

REACTIONS (1)
  - NEUTROPHIL COUNT DECREASED [None]
